FAERS Safety Report 8433635-X (Version None)
Quarter: 2012Q2

REPORT INFORMATION
  Report Type: 
  Country: None (occurrence: None)
  Receive Date: 20120613
  Receipt Date: 20120611
  Transmission Date: 20120825
  Serious: Yes (Life-Threatening, Hospitalization)
  Sender: FDA-Public Use
  Company Number: US-BRACCO-008173

PATIENT
  Age: 51 Year
  Sex: Male
  Weight: 67 kg

DRUGS (2)
  1. MULTIHANCE [Suspect]
     Indication: NUCLEAR MAGNETIC RESONANCE IMAGING
     Route: 042
     Dates: start: 20120611, end: 20120611
  2. MULTIHANCE [Suspect]
     Indication: ALCOHOLIC PANCREATITIS
     Route: 042
     Dates: start: 20120611, end: 20120611

REACTIONS (4)
  - DYSPNOEA [None]
  - CARDIAC ARREST [None]
  - VOMITING [None]
  - NAUSEA [None]
